FAERS Safety Report 9144548 (Version 3)
Quarter: 2013Q2

REPORT INFORMATION
  Report Type: Report from Study
  Country: US (occurrence: US)
  Receive Date: 20130306
  Receipt Date: 20130425
  Transmission Date: 20140414
  Serious: Yes (Hospitalization)
  Sender: FDA-Public Use
  Company Number: US-ROCHE-1195859

PATIENT
  Age: 75 Year
  Sex: Female

DRUGS (1)
  1. TRASTUZUMAB EMTANSINE [Suspect]
     Indication: BREAST CANCER
     Dosage: DATE OF MOST RECENT DOSE: 13/FEB/2013
     Route: 042
     Dates: start: 20130103

REACTIONS (1)
  - Bronchitis [Recovered/Resolved]
